FAERS Safety Report 6757068-7 (Version None)
Quarter: 2010Q2

REPORT INFORMATION
  Report Type: 
  Country: None (occurrence: None)
  Receive Date: 20100604
  Receipt Date: 20100524
  Transmission Date: 20101027
  Serious: Yes (Other)
  Sender: FDA-Public Use
  Company Number: US-ELI_LILLY_AND_COMPANY-US201005001264

PATIENT
  Sex: Female
  Weight: 60.771 kg

DRUGS (12)
  1. FORTEO [Suspect]
     Indication: OSTEOPOROSIS
     Dosage: 20 UG, DAILY (1/D)
     Dates: start: 20050701, end: 20070701
  2. VITAMIN D [Concomitant]
  3. ELMIRON [Concomitant]
  4. VIVELLE [Concomitant]
  5. PROMETRIUM [Concomitant]
  6. TESTOSTERONE [Concomitant]
  7. CYMBALTA [Concomitant]
  8. ALPRAZOLAM [Concomitant]
  9. AMBIEN [Concomitant]
  10. BONIVA [Concomitant]
  11. DARVOCET [Concomitant]
  12. ATARAX [Concomitant]

REACTIONS (3)
  - BLOOD CALCIUM INCREASED [None]
  - BREAST CANCER IN SITU [None]
  - VITAMIN D DECREASED [None]
